FAERS Safety Report 14352659 (Version 1)
Quarter: 2018Q1

REPORT INFORMATION
  Report Type: Spontaneous
  Country: US (occurrence: US)
  Receive Date: 20180104
  Receipt Date: 20180104
  Transmission Date: 20180509
  Serious: Yes (Other)
  Sender: FDA-Public Use
  Company Number: US-JAZZ-JPI-P-014538

PATIENT
  Age: 26 Year
  Sex: Female

DRUGS (4)
  1. XYREM [Suspect]
     Active Substance: SODIUM OXYBATE
     Indication: NARCOLEPSY
     Dosage: 2.5 G, BID
     Route: 048
     Dates: start: 20110303
  2. KLONOPIN [Suspect]
     Active Substance: CLONAZEPAM
     Indication: PRODUCT USED FOR UNKNOWN INDICATION
  3. BUPROPION. [Concomitant]
     Active Substance: BUPROPION
  4. VENLAFAXINE HYDROCHLORIDE. [Concomitant]
     Active Substance: VENLAFAXINE HYDROCHLORIDE

REACTIONS (4)
  - Dyspnoea [Unknown]
  - Depression [Recovered/Resolved]
  - Heart rate increased [Unknown]
  - Migraine [Not Recovered/Not Resolved]

NARRATIVE: CASE EVENT DATE: 20110314
